FAERS Safety Report 16693500 (Version 2)
Quarter: 2019Q3

REPORT INFORMATION
  Report Type: Report from Study
  Country: US (occurrence: US)
  Receive Date: 20190812
  Receipt Date: 20190822
  Transmission Date: 20191004
  Serious: No
  Sender: FDA-Public Use
  Company Number: US-ROCHE-2368461

PATIENT
  Sex: Male

DRUGS (1)
  1. OCREVUS [Suspect]
     Active Substance: OCRELIZUMAB
     Indication: PRIMARY PROGRESSIVE MULTIPLE SCLEROSIS
     Dosage: PREVIOUS DATE OF TREATMENT: 18/MAR/2018, 20/MAR/2018
     Route: 065
     Dates: start: 20180307

REACTIONS (13)
  - Asthenia [Unknown]
  - Herpes zoster [Recovered/Resolved]
  - Back pain [Unknown]
  - Sensory disturbance [Unknown]
  - Fatigue [Unknown]
  - Myalgia [Unknown]
  - Asthenia [Not Recovered/Not Resolved]
  - Fatigue [Not Recovered/Not Resolved]
  - Oral herpes [Unknown]
  - Myalgia [Not Recovered/Not Resolved]
  - Peripheral swelling [Unknown]
  - Herpes zoster [Unknown]
  - Tendon pain [Unknown]
